FAERS Safety Report 10663680 (Version 1)
Quarter: 2014Q4

REPORT INFORMATION
  Report Type: Spontaneous
  Country: FR (occurrence: FR)
  Receive Date: 20141219
  Receipt Date: 20141219
  Transmission Date: 20150529
  Serious: Yes (Other)
  Sender: FDA-Public Use
  Company Number: FR-CIPLA LTD.-2014FR02622

PATIENT

DRUGS (8)
  1. PACLITAXEL. [Suspect]
     Active Substance: PACLITAXEL
     Indication: NEOPLASM
     Dosage: UNK, 3H INFUSION
  2. CARBOPLATIN. [Suspect]
     Active Substance: CARBOPLATIN
     Dosage: AUC 6 MG/ML/MIN
     Route: 042
  3. CISPLATIN. [Suspect]
     Active Substance: CISPLATIN
     Indication: NEOPLASM
     Dosage: 75 MG/M2, 2H INFUSION
  4. CARBOPLATIN. [Suspect]
     Active Substance: CARBOPLATIN
     Indication: NEOPLASM
     Dosage: AUC 5 MG/ML/MIN
     Route: 042
  5. DOCETAXEL. [Suspect]
     Active Substance: DOCETAXEL
     Indication: NEOPLASM
     Dosage: 60 OR 75 MG/M2, 1H INFUSION
  6. DOCETAXEL. [Suspect]
     Active Substance: DOCETAXEL
     Dosage: 75 MG/M2, 1H INFUSION
  7. OMBRABULIN [Suspect]
     Active Substance: OMBRABULIN
     Indication: NEOPLASM
     Dosage: 15.5 TO 25 MG/M2 (COHORT 1), AS A 30-MIN INTRAVENOUS INFUSION ON DAY 1
  8. OMBRABULIN [Suspect]
     Active Substance: OMBRABULIN
     Dosage: 20 TO 35 MG/M2 (COHORT 1), AS A 30-MIN INTRAVENOUS INFUSION ON DAY 1

REACTIONS (1)
  - Troponin I increased [Unknown]
